FAERS Safety Report 4860181-2 (Version None)
Quarter: 2005Q4

REPORT INFORMATION
  Report Type: 
  Country: None (occurrence: None)
  Receive Date: 20051219
  Receipt Date: 20010828
  Transmission Date: 20060501
  Serious: Yes (Hospitalization)
  Sender: FDA-Public Use
  Company Number: CN-ROCHE-266888

PATIENT
  Age: 46 Year
  Sex: Male
  Weight: 72.6 kg

DRUGS (6)
  1. PEG-INTERFERON ALFA 2A (RO 25-8310) [Suspect]
     Route: 058
     Dates: start: 20010813, end: 20010820
  2. PEG-INTERFERON ALFA 2A (RO 25-8310) [Suspect]
     Route: 058
     Dates: start: 20010904
  3. LAMIVUDINE [Suspect]
     Route: 048
     Dates: start: 20010813
  4. LANSOPRAZOLE [Concomitant]
     Dates: start: 20010815, end: 20010826
  5. TINIDAZOLE [Concomitant]
     Dates: start: 20010815, end: 20010826
  6. CHINESE MEDICINE [Concomitant]
     Dates: start: 20010815, end: 20010826

REACTIONS (3)
  - CONVULSION [None]
  - LOSS OF CONSCIOUSNESS [None]
  - SYNCOPE [None]
